FAERS Safety Report 5417817-7 (Version None)
Quarter: 2007Q3

REPORT INFORMATION
  Report Type: 
  Country: None (occurrence: None)
  Receive Date: 20070817
  Receipt Date: 20070814
  Transmission Date: 20080115
  Serious: Yes (Life-Threatening, Hospitalization)
  Sender: FDA-Public Use
  Company Number: PHBS2007EG13586

PATIENT
  Age: 30 Year
  Sex: Male

DRUGS (2)
  1. WARFARIN [Suspect]
  2. DICLOFENAC [Suspect]
     Indication: UPPER LIMB FRACTURE

REACTIONS (13)
  - ATRIAL FIBRILLATION [None]
  - BILIARY FIBROSIS [None]
  - BODY TEMPERATURE INCREASED [None]
  - CARDIOMEGALY [None]
  - GASTROINTESTINAL EROSION [None]
  - HAEMATEMESIS [None]
  - HAEMOGLOBIN DECREASED [None]
  - HAEMOPTYSIS [None]
  - HEART RATE INCREASED [None]
  - INTERNATIONAL NORMALISED RATIO INCREASED [None]
  - MELAENA [None]
  - PNEUMONIA [None]
  - PROTHROMBIN LEVEL ABNORMAL [None]
